FAERS Safety Report 5175004-4 (Version None)
Quarter: 2006Q4

REPORT INFORMATION
  Report Type: 
  Country: None (occurrence: None)
  Receive Date: 20061214
  Receipt Date: 20060531
  Transmission Date: 20070319
  Serious: No
  Sender: FDA-Public Use
  Company Number: US-AMGEN-KDL181538

PATIENT
  Sex: Female

DRUGS (3)
  1. ENBREL [Suspect]
     Indication: RHEUMATOID ARTHRITIS
     Route: 058
     Dates: start: 20060530
  2. PLAQUENIL [Concomitant]
     Route: 048
     Dates: start: 19960101
  3. SULFASALAZINE [Concomitant]
     Route: 048
     Dates: start: 20051201

REACTIONS (2)
  - HEADACHE [None]
  - VISION BLURRED [None]
